FAERS Safety Report 4500814-3 (Version None)
Quarter: 2004Q4

REPORT INFORMATION
  Report Type: 
  Country: None (occurrence: None)
  Receive Date: 20041115
  Receipt Date: 20041102
  Transmission Date: 20050328
  Serious: Yes (Other)
  Sender: FDA-Public Use
  Company Number: ES-MERCK-0411ESP00002

PATIENT
  Age: 26 Month
  Sex: Male

DRUGS (4)
  1. SINGULAIR [Suspect]
     Indication: BRONCHIAL HYPERACTIVITY
     Route: 048
     Dates: start: 20041001, end: 20041001
  2. ALBUTEROL SULFATE [Concomitant]
     Indication: BRONCHIAL HYPERACTIVITY
     Route: 065
  3. BUDESONIDE [Concomitant]
     Indication: BRONCHIAL HYPERACTIVITY
     Route: 065
  4. VALPROATE SODIUM [Suspect]
     Indication: PETIT MAL EPILEPSY
     Route: 048
     Dates: end: 20041001

REACTIONS (2)
  - DRUG INTERACTION [None]
  - PETIT MAL EPILEPSY [None]
